FAERS Safety Report 23520623 (Version 1)
Quarter: 2024Q1

REPORT INFORMATION
  Report Type: 
  Country: None (occurrence: None)
  Receive Date: 20240214
  Receipt Date: 20240214
  Transmission Date: 20240410
  Serious: No
  Sender: FDA-Public Use
  Company Number: US-ROCHE-3504553

PATIENT
  Weight: 11.4 kg

DRUGS (1)
  1. HEMLIBRA [Suspect]
     Active Substance: EMICIZUMAB-KXWH
     Dates: start: 20221025

REACTIONS (3)
  - Haemorrhage [None]
  - Fall [None]
  - Avulsion fracture [None]

NARRATIVE: CASE EVENT DATE: 20240130
